FAERS Safety Report 6913097-1 (Version None)
Quarter: 2010Q3

REPORT INFORMATION
  Report Type: 
  Country: None (occurrence: None)
  Receive Date: 20100806
  Receipt Date: 20090724
  Transmission Date: 20110219
  Serious: No
  Sender: FDA-Public Use
  Company Number: US-PFIZER INC-2009231359

PATIENT
  Sex: Female
  Weight: 59 kg

DRUGS (5)
  1. DETROL [Suspect]
     Indication: URINARY INCONTINENCE
     Dosage: UNK
  2. OXYBUTYNIN [Concomitant]
     Dosage: 3.9 MG, UNK
  3. DITROPAN [Concomitant]
     Dosage: 5 MG, UNK
  4. TROSPIUM CHLORIDE [Concomitant]
     Dosage: 60 MG, UNK
  5. TOVIAZ [Concomitant]
     Dosage: 4 MG, UNK

REACTIONS (1)
  - DRUG INEFFECTIVE [None]
